FAERS Safety Report 4801922-X (Version None)
Quarter: 2005Q4

REPORT INFORMATION
  Report Type: 
  Country: None (occurrence: None)
  Receive Date: 20051014
  Receipt Date: 20051014
  Transmission Date: 20060501
  Serious: Yes (Disabling)
  Sender: FDA-Public Use
  Company Number: None

PATIENT
  Age: 58 Year
  Sex: Male
  Weight: 74.8435 kg

DRUGS (2)
  1. THERACYS [Suspect]
     Indication: BLADDER CANCER
     Dosage: 81 MG INTRAVESICAL ONCE WEEKLY X 6 WEEKS
     Route: 043
     Dates: start: 20050701, end: 20050801
  2. SEPTRA DS [Concomitant]

REACTIONS (4)
  - ARTHRALGIA [None]
  - MYALGIA [None]
  - PAIN [None]
  - SELF-MEDICATION [None]
